FAERS Safety Report 6369794-2 (Version None)
Quarter: 2009Q3

REPORT INFORMATION
  Report Type: 
  Country: None (occurrence: None)
  Receive Date: 20090923
  Receipt Date: 20090915
  Transmission Date: 20100115
  Serious: Yes (Other)
  Sender: FDA-Public Use
  Company Number: US-ASTRAZENECA-2009UW13428

PATIENT
  Age: 61 Year
  Sex: Male
  Weight: 79.4 kg

DRUGS (12)
  1. SEROQUEL [Suspect]
     Indication: ANXIETY
     Route: 048
     Dates: start: 19970101
  2. SEROQUEL [Suspect]
     Indication: DEPRESSION
     Route: 048
     Dates: start: 19970101
  3. RISPERDAL [Concomitant]
     Indication: ANXIETY
  4. ZYPREXA [Concomitant]
     Indication: ANXIETY
     Dates: start: 20000101
  5. ZYPREXA [Concomitant]
     Indication: DEPRESSION
     Dates: start: 20000101
  6. HALDOL [Concomitant]
     Dates: start: 19900101
  7. THORAZINE [Concomitant]
     Dates: start: 19950101, end: 19970101
  8. TOFRANIL [Concomitant]
  9. DEPAKOTE [Concomitant]
  10. PROZAC [Concomitant]
  11. BUSPAR [Concomitant]
  12. VALIUM [Concomitant]

REACTIONS (2)
  - BRAIN NEOPLASM [None]
  - TYPE 2 DIABETES MELLITUS [None]
